FAERS Safety Report 4371706-8 (Version None)
Quarter: 2004Q2

REPORT INFORMATION
  Report Type: 
  Country: None (occurrence: None)
  Receive Date: 20040604
  Receipt Date: 20040604
  Transmission Date: 20050107
  Serious: Yes (Hospitalization, Other)
  Sender: FDA-Public Use
  Company Number: None

PATIENT
  Age: 79 Year
  Sex: Female

DRUGS (5)
  1. VALTREX [Suspect]
     Indication: HERPES ZOSTER
     Dosage: 1 GRAM BID
     Dates: start: 20040516, end: 20040519
  2. VIOXX [Suspect]
     Indication: ARTHRITIS
     Dosage: 25 MG DAILY
  3. ASPIRIN [Concomitant]
  4. PLAVIX [Concomitant]
  5. VIOXX [Concomitant]

REACTIONS (1)
  - RENAL FAILURE ACUTE [None]
